FAERS Safety Report 5119152-3 (Version None)
Quarter: 2006Q3

REPORT INFORMATION
  Report Type: 
  Country: None (occurrence: None)
  Receive Date: 20060929
  Receipt Date: 20060929
  Transmission Date: 20061208
  Serious: No
  Sender: FDA-Public Use
  Company Number: None

PATIENT
  Sex: Male
  Weight: 92 kg

DRUGS (6)
  1. LEVITRA [Suspect]
     Indication: ERECTILE DYSFUNCTION
     Dosage: 10 MG PRN PO
     Route: 048
     Dates: start: 20060516, end: 20060630
  2. OMEPRAZOLE [Concomitant]
  3. MYLANTA CHEWABLE [Concomitant]
  4. PIROXICAM [Concomitant]
  5. BETASONE OINT [Concomitant]
  6. SALICYLIC ACID2/SULFUR 2% SHAMPOO [Concomitant]

REACTIONS (4)
  - BLOOD PRESSURE INCREASED [None]
  - DISCOMFORT [None]
  - EUPHORIC MOOD [None]
  - HEADACHE [None]
